FAERS Safety Report 8255520-9 (Version None)
Quarter: 2012Q2

REPORT INFORMATION
  Report Type: 
  Country: None (occurrence: None)
  Receive Date: 20120403
  Receipt Date: 20120330
  Transmission Date: 20120825
  Serious: No
  Sender: FDA-Public Use
  Company Number: US-PFIZER INC-2012082134

PATIENT
  Sex: Female

DRUGS (3)
  1. BISOPROLOL [Concomitant]
     Dosage: UNK
  2. LEVOXYL [Suspect]
     Dosage: 75 UG, 1X/DAY
     Route: 048
     Dates: start: 20100716
  3. HYDROCHLOROTHIAZIDE [Concomitant]
     Dosage: UNK

REACTIONS (2)
  - SKIN DISORDER [None]
  - PRURITUS [None]
